FAERS Safety Report 17010346 (Version 1)
Quarter: 2019Q4

REPORT INFORMATION
  Report Type: Spontaneous
  Country: US (occurrence: US)
  Receive Date: 20191107
  Receipt Date: 20191107
  Transmission Date: 20200122
  Serious: Yes (Hospitalization, Other)
  Sender: FDA-Public Use
  Company Number: None

PATIENT
  Age: 75 Year
  Sex: Male
  Weight: 73.35 kg

DRUGS (11)
  1. VITAMIN D3 [Concomitant]
     Active Substance: CHOLECALCIFEROL
  2. VITAMIN B12 [Concomitant]
     Active Substance: CYANOCOBALAMIN
  3. ATENOLOL. [Concomitant]
     Active Substance: ATENOLOL
  4. LEVOTHYROXINE. [Concomitant]
     Active Substance: LEVOTHYROXINE
  5. ATORVASTATIN [Concomitant]
     Active Substance: ATORVASTATIN
  6. METFORMIN [Concomitant]
     Active Substance: METFORMIN HYDROCHLORIDE
  7. LUPRON [Concomitant]
     Active Substance: LEUPROLIDE ACETATE
  8. CALCIUM [Concomitant]
     Active Substance: CALCIUM
  9. XTANDI [Suspect]
     Active Substance: ENZALUTAMIDE
     Indication: PROSTATE CANCER
     Dosage: ?          QUANTITY:4 CAPSULE(S);?
     Route: 048
     Dates: start: 20180627, end: 20190214
  10. LOSARTAN. [Concomitant]
     Active Substance: LOSARTAN
  11. FAMOTIDINE (GENERIC PEPCID) [Concomitant]

REACTIONS (8)
  - Dyspnoea [None]
  - Sleep disorder [None]
  - Restless legs syndrome [None]
  - Spinal compression fracture [None]
  - Amnesia [None]
  - Hot flush [None]
  - Fall [None]
  - Seizure [None]

NARRATIVE: CASE EVENT DATE: 20190201
